FAERS Safety Report 5798467-X (Version None)
Quarter: 2008Q3

REPORT INFORMATION
  Report Type: 
  Country: None (occurrence: None)
  Receive Date: 20080702
  Receipt Date: 20080626
  Transmission Date: 20090109
  Serious: Yes (Life-Threatening, Hospitalization)
  Sender: FDA-Public Use
  Company Number: PHHO2008FR06319

PATIENT
  Sex: Male
  Weight: 84 kg

DRUGS (15)
  1. MYCOPHENOLIC ACID [Suspect]
     Indication: CHRONIC GRAFT VERSUS HOST DISEASE
     Dosage: CODE NOT BROKEN
     Route: 048
     Dates: start: 20080418, end: 20080509
  2. BLINDED NO TREATMENT RECEIVED NOMED [Suspect]
     Indication: CHRONIC GRAFT VERSUS HOST DISEASE
     Dosage: CODE NOT BROKEN
     Route: 048
     Dates: start: 20080418, end: 20080509
  3. BLINDED PLACEBO COMP-PLA+ [Suspect]
     Indication: CHRONIC GRAFT VERSUS HOST DISEASE
     Dosage: CODE NOT BROKEN
     Route: 048
     Dates: start: 20080418, end: 20080509
  4. NEORAL [Suspect]
     Indication: CHRONIC GRAFT VERSUS HOST DISEASE
     Dosage: 100 MG, BID
     Route: 042
     Dates: end: 20080509
  5. CORTANCYL [Suspect]
     Indication: CHRONIC GRAFT VERSUS HOST DISEASE
     Dosage: 110 MG, QD
     Route: 042
     Dates: end: 20080509
  6. ORACILLINE [Concomitant]
  7. VALACYCLOVIR HCL [Concomitant]
  8. ZEFFIX [Concomitant]
     Indication: HEPATITIS B
  9. NOXAFIL [Concomitant]
     Indication: FUNGAL INFECTION
  10. OROCAL D3 [Concomitant]
     Indication: NUTRITIONAL SUPPORT
  11. ACTONEL [Concomitant]
  12. NEURONTIN [Concomitant]
  13. RAMIPRIL [Concomitant]
     Indication: HYPERTENSION
  14. HUMALOG [Concomitant]
     Indication: DIABETES MELLITUS
  15. LANTUS [Concomitant]
     Indication: DIABETES MELLITUS

REACTIONS (5)
  - CYTOLYTIC HEPATITIS [None]
  - ESCHERICHIA SEPSIS [None]
  - HEPATITIS CHOLESTATIC [None]
  - SEPTIC SHOCK [None]
  - THROMBOTIC THROMBOCYTOPENIC PURPURA [None]
